FAERS Safety Report 20714244 (Version 2)
Quarter: 2022Q2

REPORT INFORMATION
  Report Type: Spontaneous
  Country: BG (occurrence: BG)
  Receive Date: 20220415
  Receipt Date: 20220421
  Transmission Date: 20220721
  Serious: Yes (Other)
  Sender: FDA-Public Use
  Company Number: BG-ALLERGAN-1901128US

PATIENT
  Sex: Female

DRUGS (5)
  1. LUMIGAN [Suspect]
     Active Substance: BIMATOPROST
     Indication: Angle closure glaucoma
     Dosage: UNK
     Route: 047
  2. LUMIGAN [Suspect]
     Active Substance: BIMATOPROST
     Indication: Intraocular pressure increased
  3. COSOPT [Suspect]
     Active Substance: DORZOLAMIDE HYDROCHLORIDE\TIMOLOL MALEATE
     Indication: Angle closure glaucoma
     Dosage: UNK
     Route: 047
  4. AZOPT [Concomitant]
     Active Substance: BRINZOLAMIDE
     Indication: Glaucoma
     Dosage: UNK
     Route: 047
     Dates: start: 2016
  5. FOTIL [Concomitant]
     Indication: Glaucoma
     Dosage: UNK
     Route: 047
     Dates: start: 2016

REACTIONS (2)
  - Cataract nuclear [Unknown]
  - Off label use [Unknown]
